FAERS Safety Report 4723993-1 (Version None)
Quarter: 2005Q3

REPORT INFORMATION
  Report Type: 
  Country: None (occurrence: None)
  Receive Date: 20050721
  Receipt Date: 20050706
  Transmission Date: 20060218
  Serious: Yes (Other)
  Sender: FDA-Public Use
  Company Number: A-US2003-03627

PATIENT
  Age: 43 Year
  Sex: Female
  Weight: 83 kg

DRUGS (5)
  1. TRACLEER [Suspect]
     Indication: PULMONARY HYPERTENSION
     Dosage: 62.5 MG, BID, ORAL; SEE IMAGE
     Route: 048
     Dates: start: 20030501, end: 20030729
  2. TRACLEER [Suspect]
     Indication: PULMONARY HYPERTENSION
     Dosage: 62.5 MG, BID, ORAL; SEE IMAGE
     Route: 048
     Dates: start: 20030730, end: 20030825
  3. TRACLEER [Suspect]
     Indication: PULMONARY HYPERTENSION
     Dosage: 62.5 MG, BID, ORAL; SEE IMAGE
     Route: 048
     Dates: start: 20050322, end: 20050322
  4. FLOLAN [Concomitant]
  5. COUMADIN [Concomitant]

REACTIONS (7)
  - ABDOMINAL DISCOMFORT [None]
  - ALANINE AMINOTRANSFERASE INCREASED [None]
  - ASPARTATE AMINOTRANSFERASE INCREASED [None]
  - BACK PAIN [None]
  - BLOOD ALKALINE PHOSPHATASE INCREASED [None]
  - DYSPEPSIA [None]
  - NAUSEA [None]
